FAERS Safety Report 20977154 (Version 3)
Quarter: 2023Q1

REPORT INFORMATION
  Report Type: Report from Study
  Country: CA (occurrence: CA)
  Receive Date: 20220617
  Receipt Date: 20230125
  Transmission Date: 20230417
  Serious: Yes (Other)
  Sender: FDA-Public Use
  Company Number: CA-JNJFOC-20220334797

PATIENT
  Age: 12 Year
  Sex: Male
  Weight: 38 kg

DRUGS (1)
  1. REMICADE [Suspect]
     Active Substance: INFLIXIMAB
     Indication: Crohn^s disease
     Dosage: EXPIRY DATE: 01-SEP-2024., 01-OCT-2024
     Route: 041

REACTIONS (3)
  - Ingrown hair [Recovering/Resolving]
  - Acne [Recovering/Resolving]
  - Papilloma viral infection [Not Recovered/Not Resolved]

NARRATIVE: CASE EVENT DATE: 20220315
